FAERS Safety Report 9264882 (Version 3)
Quarter: 2013Q2

REPORT INFORMATION
  Report Type: Spontaneous
  Country: US (occurrence: US)
  Receive Date: 20130501
  Receipt Date: 20130604
  Transmission Date: 20140414
  Serious: Yes (Hospitalization, Other)
  Sender: FDA-Public Use
  Company Number: US-TEVA-400929USA

PATIENT
  Age: 50 Year
  Sex: Male

DRUGS (1)
  1. COPAXONE [Suspect]
     Indication: RELAPSING-REMITTING MULTIPLE SCLEROSIS
     Dates: start: 20130223, end: 20130424

REACTIONS (13)
  - Suicidal ideation [Unknown]
  - Suicide attempt [Recovering/Resolving]
  - Hallucination, auditory [Unknown]
  - Tremor [Unknown]
  - Neck pain [Unknown]
  - Insomnia [Unknown]
  - Anxiety [Unknown]
  - Frustration [Unknown]
  - Hypertonia [Unknown]
  - Irritability [Unknown]
  - Depressed mood [Unknown]
  - Fatigue [Unknown]
  - Injection site reaction [Unknown]
